FAERS Safety Report 4512607-1 (Version None)
Quarter: 2004Q4

REPORT INFORMATION
  Report Type: 
  Country: None (occurrence: None)
  Receive Date: 20041129
  Receipt Date: 20041119
  Transmission Date: 20050328
  Serious: Yes (Other)
  Sender: FDA-Public Use
  Company Number: CN-MERCK-0411CHN00084

PATIENT
  Age: 62 Year
  Sex: Female

DRUGS (2)
  1. VIOXX [Suspect]
     Indication: INTERVERTEBRAL DISC PROTRUSION
     Route: 048
     Dates: start: 20040601, end: 20040701
  2. VIOXX [Suspect]
     Route: 048
     Dates: start: 20040701, end: 20040901

REACTIONS (7)
  - BLOOD PRESSURE FLUCTUATION [None]
  - BLOOD PRESSURE INCREASED [None]
  - CEREBRAL ISCHAEMIA [None]
  - DIZZINESS [None]
  - HYPOAESTHESIA [None]
  - LIP DISCOLOURATION [None]
  - NAUSEA [None]
